FAERS Safety Report 16878042 (Version 1)
Quarter: 2019Q4

REPORT INFORMATION
  Report Type: Report from Study
  Country: GB (occurrence: GB)
  Receive Date: 20191002
  Receipt Date: 20191002
  Transmission Date: 20200122
  Serious: Yes (Hospitalization)
  Sender: FDA-Public Use
  Company Number: GB-INCYTE CORPORATION-2019IN009822

PATIENT

DRUGS (14)
  1. IRON [Concomitant]
     Active Substance: IRON
     Indication: ANAEMIA
  2. ANADIN EXTRA [Concomitant]
     Active Substance: ACETAMINOPHEN\ASPIRIN\CAFFEINE
     Indication: INFLUENZA LIKE ILLNESS
  3. IRON [Concomitant]
     Active Substance: IRON
     Indication: MINERAL SUPPLEMENTATION
     Dosage: 14 MG, QD
     Route: 048
     Dates: start: 20140811
  4. NAVITOCLAX [Suspect]
     Active Substance: NAVITOCLAX
     Indication: MYELOFIBROSIS
     Dosage: 50 MG, QD
     Route: 048
     Dates: start: 20180212, end: 20180219
  5. NAVITOCLAX [Suspect]
     Active Substance: NAVITOCLAX
     Dosage: 300 MG, QD
     Route: 048
     Dates: start: 20180305, end: 20180310
  6. COD LIVER OIL [Concomitant]
     Active Substance: COD LIVER OIL
     Indication: ARTHROPATHY
     Dosage: 1 DF, QD
     Route: 048
     Dates: start: 2008
  7. CETIRIZINE [Concomitant]
     Active Substance: CETIRIZINE HYDROCHLORIDE
     Indication: PRURITUS
     Dosage: 10 MG, PRN
     Route: 048
     Dates: start: 20150701
  8. NAVITOCLAX [Suspect]
     Active Substance: NAVITOCLAX
     Dosage: 100 MG, QD
     Route: 048
     Dates: start: 20180220, end: 20180225
  9. PARACETAMOL [Concomitant]
     Active Substance: ACETAMINOPHEN
     Indication: PRODUCT USED FOR UNKNOWN INDICATION
     Route: 065
  10. JAKAVI [Suspect]
     Active Substance: RUXOLITINIB
     Indication: MYELOFIBROSIS
     Dosage: 20 MG, BID
     Route: 048
     Dates: start: 20180212
  11. NAVITOCLAX [Suspect]
     Active Substance: NAVITOCLAX
     Dosage: 200 MG, QD
     Route: 048
     Dates: start: 20180226, end: 20180304
  12. LOPERAMIDE [Concomitant]
     Active Substance: LOPERAMIDE
     Indication: DIARRHOEA
     Dosage: 4 MG, BID
     Route: 048
     Dates: start: 20180212, end: 20180312
  13. ANADIN EXTRA [Concomitant]
     Active Substance: ACETAMINOPHEN\ASPIRIN\CAFFEINE
     Indication: BACK PAIN
     Dosage: UNK UNK, PRN
     Route: 048
     Dates: start: 2012
  14. NAVITOCLAX [Suspect]
     Active Substance: NAVITOCLAX
     Dosage: 200 MG, QD
     Route: 048
     Dates: start: 20180312, end: 20180312

REACTIONS (7)
  - Liver function test abnormal [Recovered/Resolved]
  - Red blood cell sedimentation rate increased [Recovering/Resolving]
  - C-reactive protein increased [Recovering/Resolving]
  - Neck pain [Unknown]
  - Ear pain [Unknown]
  - Pyrexia [Unknown]
  - Hepatitis A antibody positive [Unknown]

NARRATIVE: CASE EVENT DATE: 20180315
